FAERS Safety Report 5007922-1 (Version None)
Quarter: 2006Q2

REPORT INFORMATION
  Report Type: 
  Country: None (occurrence: None)
  Receive Date: 20060518
  Receipt Date: 20060508
  Transmission Date: 20061013
  Serious: Yes (Other)
  Sender: FDA-Public Use
  Company Number: GB200603003639

PATIENT
  Age: 59 Year
  Sex: Female

DRUGS (4)
  1. PEMETREXED (PEMETREXED) [Suspect]
     Indication: LUNG NEOPLASM MALIGNANT
     Dosage: 650 MG, INTRAVENOUS
     Route: 042
     Dates: start: 20060209
  2. DEXAMETHASONE [Concomitant]
  3. FOLIC ACID [Concomitant]
  4. CYANOCOBALAMIN [Concomitant]

REACTIONS (3)
  - DYSARTHRIA [None]
  - SPEECH DISORDER [None]
  - TRISMUS [None]
